FAERS Safety Report 6742143-3 (Version None)
Quarter: 2010Q2

REPORT INFORMATION
  Report Type: 
  Country: None (occurrence: None)
  Receive Date: 20100526
  Receipt Date: 20100524
  Transmission Date: 20101027
  Serious: Yes (Other)
  Sender: FDA-Public Use
  Company Number: US-ELI_LILLY_AND_COMPANY-US201005006185

PATIENT
  Sex: Female

DRUGS (6)
  1. HUMALOG MIX 75/25 [Suspect]
     Indication: DIABETES MELLITUS
     Dosage: 25 U, EACH MORNING
     Dates: start: 20091001
  2. HUMALOG MIX 75/25 [Suspect]
     Dosage: 15 U, EACH EVENING
     Dates: start: 20091001
  3. HUMALOG MIX 75/25 [Suspect]
     Dosage: 25 U, EACH MORNING
     Dates: start: 20091001
  4. HUMALOG MIX 75/25 [Suspect]
     Dosage: 15 U, EACH EVENING
     Dates: start: 20091001
  5. HUMULIN N [Suspect]
     Indication: DIABETES MELLITUS
     Dosage: UNK, UNK
     Dates: start: 19900101, end: 20091001
  6. HUMALOG [Suspect]
     Indication: DIABETES MELLITUS
     Dates: end: 20091001

REACTIONS (2)
  - CARDIAC DISORDER [None]
  - PRURITUS [None]
